FAERS Safety Report 21746260 (Version 2)
Quarter: 2023Q1

REPORT INFORMATION
  Report Type: Report from Study
  Country: US (occurrence: US)
  Receive Date: 20221219
  Receipt Date: 20230314
  Transmission Date: 20230417
  Serious: No
  Sender: FDA-Public Use
  Company Number: US-ABBVIE-4212479

PATIENT
  Age: 4 Year
  Sex: Male

DRUGS (1)
  1. HUMIRA [Suspect]
     Active Substance: ADALIMUMAB
     Indication: Juvenile idiopathic arthritis
     Dosage: 20 MG CF
     Route: 058
     Dates: start: 20221106

REACTIONS (4)
  - Wrong technique in product usage process [Not Recovered/Not Resolved]
  - Anxiety [Recovering/Resolving]
  - Product administered at inappropriate site [Unknown]
  - Crying [Recovering/Resolving]

NARRATIVE: CASE EVENT DATE: 20221106
